FAERS Safety Report 6291355-4 (Version None)
Quarter: 2009Q3

REPORT INFORMATION
  Report Type: 
  Country: None (occurrence: None)
  Receive Date: 20090730
  Receipt Date: 20090721
  Transmission Date: 20100115
  Serious: Yes (Other)
  Sender: FDA-Public Use
  Company Number: IT-ELI_LILLY_AND_COMPANY-IT200907004879

PATIENT
  Sex: Male

DRUGS (4)
  1. GEMZAR [Suspect]
     Indication: GERM CELL CANCER
     Dosage: 800 MG/M2, OTHER DAYS 1 + 8 EVERY 3 WEEKS
  2. CISPLATIN [Concomitant]
     Indication: GERM CELL CANCER
     Dosage: 50 MG/M2, OTHER DAYS ONE AND EIGHT EVERY 3 WEEKS
  3. PACLITAXEL [Concomitant]
     Dosage: 80 MG/M2, DAYS ONE AND EIGHT EVERY THREE WEEKS
  4. NEUPOGEN [Concomitant]

REACTIONS (1)
  - NEPHROPATHY TOXIC [None]
